FAERS Safety Report 4782319-8 (Version None)
Quarter: 2005Q3

REPORT INFORMATION
  Report Type: 
  Country: None (occurrence: None)
  Receive Date: 20050929
  Receipt Date: 20040906
  Transmission Date: 20060218
  Serious: Yes (Congenital Anomaly)
  Sender: FDA-Public Use
  Company Number: GB-ABBOTT-04P-167-0272674-00

PATIENT
  Sex: Male

DRUGS (1)
  1. EPILIM [Suspect]
     Indication: DRUG EXPOSURE DURING PREGNANCY

REACTIONS (32)
  - ABNORMAL BEHAVIOUR [None]
  - AGGRESSION [None]
  - ANTISOCIAL BEHAVIOUR [None]
  - ASCITES [None]
  - ASTHMA [None]
  - ATRIAL SEPTAL DEFECT [None]
  - AUTISM [None]
  - CEREBRAL VENTRICLE DILATATION [None]
  - COMMUNICATION DISORDER [None]
  - CONGENITAL ANOMALY [None]
  - CONGENITAL NOSE MALFORMATION [None]
  - DEVELOPMENTAL DELAY [None]
  - DYSLEXIA [None]
  - ENURESIS [None]
  - FEEDING DISORDER NEONATAL [None]
  - FOETAL VALPROATE SYNDROME [None]
  - HYDROCELE [None]
  - HYDROCEPHALUS [None]
  - HYPERPHAGIA [None]
  - HYPERTELORISM OF ORBIT [None]
  - HYPOTONIA [None]
  - INTESTINAL FUNCTIONAL DISORDER [None]
  - JAUNDICE [None]
  - OBESITY [None]
  - PETIT MAL EPILEPSY [None]
  - POOR SUCKING REFLEX [None]
  - PSYCHOMOTOR HYPERACTIVITY [None]
  - PSYCHOMOTOR SKILLS IMPAIRED [None]
  - SPEECH DISORDER DEVELOPMENTAL [None]
  - STRABISMUS [None]
  - TALIPES [None]
  - VISUAL TRACKING TEST ABNORMAL [None]
